FAERS Safety Report 15128409 (Version 3)
Quarter: 2018Q3

REPORT INFORMATION
  Report Type: Spontaneous
  Country: US (occurrence: US)
  Receive Date: 20180711
  Receipt Date: 20180912
  Transmission Date: 20181010
  Serious: Yes (Other)
  Sender: FDA-Public Use
  Company Number: US-AMGEN-USASP2018091559

PATIENT
  Age: 72 Year
  Sex: Female

DRUGS (4)
  1. PROLIA [Suspect]
     Active Substance: DENOSUMAB
     Indication: PRODUCT USED FOR UNKNOWN INDICATION
     Dosage: UNK
     Route: 065
     Dates: start: 201712
  2. CELEBREX [Concomitant]
     Active Substance: CELECOXIB
     Dosage: UNK
  3. XARELTO [Concomitant]
     Active Substance: RIVAROXABAN
     Dosage: UNK
     Dates: start: 2014
  4. TYLENOL [Concomitant]
     Active Substance: ACETAMINOPHEN
     Indication: BACK PAIN

REACTIONS (14)
  - Bone pain [Unknown]
  - Arthropathy [Unknown]
  - Catheter site pain [Unknown]
  - Musculoskeletal disorder [Unknown]
  - Sunburn [Not Recovered/Not Resolved]
  - Weight increased [Unknown]
  - Mobility decreased [Unknown]
  - Skin exfoliation [Unknown]
  - Pruritus [Unknown]
  - Dry skin [Unknown]
  - Pain in extremity [Unknown]
  - Micturition urgency [Unknown]
  - Dyspnoea [Unknown]
  - Fall [Unknown]

NARRATIVE: CASE EVENT DATE: 2018
